FAERS Safety Report 4309029-5 (Version None)
Quarter: 2004Q1

REPORT INFORMATION
  Report Type: 
  Country: None (occurrence: None)
  Receive Date: 20040301
  Receipt Date: 20030804
  Transmission Date: 20041129
  Serious: No
  Sender: FDA-Public Use
  Company Number: 03-08-0948

PATIENT
  Age: 71 Year
  Sex: Male
  Weight: 66.6788 kg

DRUGS (2)
  1. HYDROCHLOROTHIAZIDE TAB [Suspect]
     Indication: HYPERTENSION
     Dosage: 12.5MG QD ORAL
     Route: 048
     Dates: start: 19980729, end: 19980821
  2. MAVIK [Concomitant]

REACTIONS (1)
  - VOMITING [None]
